FAERS Safety Report 7874933-8 (Version None)
Quarter: 2011Q4

REPORT INFORMATION
  Report Type: 
  Country: None (occurrence: None)
  Receive Date: 20111031
  Receipt Date: 20111020
  Transmission Date: 20120403
  Serious: Yes (Death)
  Sender: FDA-Public Use
  Company Number: CH-JNJFOC-20111010406

PATIENT
  Age: 37 Year
  Sex: Male

DRUGS (4)
  1. HALOPERIDOL [Suspect]
     Indication: PRODUCT USED FOR UNKNOWN INDICATION
     Route: 030
  2. NALBUPHIN [Concomitant]
     Route: 065
  3. PHENYLTOLOXAMINE [Concomitant]
     Route: 065
  4. HYDROCODONE BITARTRATE [Concomitant]
     Route: 065

REACTIONS (1)
  - CARDIAC ARREST [None]
